FAERS Safety Report 16447183 (Version 6)
Quarter: 2019Q4

REPORT INFORMATION
  Report Type: Report from Study
  Country: TW (occurrence: TW)
  Receive Date: 20190618
  Receipt Date: 20191223
  Transmission Date: 20200122
  Serious: Yes (Hospitalization, Other)
  Sender: FDA-Public Use
  Company Number: TW-INCYTE CORPORATION-2019IN003497

PATIENT

DRUGS (8)
  1. HYDRALAZINE [Concomitant]
     Active Substance: HYDRALAZINE HYDROCHLORIDE
     Indication: PRODUCT USED FOR UNKNOWN INDICATION
     Dosage: 56 MG, QID (PRN)
     Route: 048
  2. HYDREA [Concomitant]
     Active Substance: HYDROXYUREA
     Indication: MYELODYSPLASTIC SYNDROME
     Dosage: UNK
     Route: 065
  3. HCT [Concomitant]
     Active Substance: HYDROCHLOROTHIAZIDE
     Indication: PRODUCT USED FOR UNKNOWN INDICATION
     Dosage: 14 OT, UNK
     Route: 048
  4. JAKAVI [Suspect]
     Active Substance: RUXOLITINIB
     Dosage: 5 MG
     Route: 048
     Dates: start: 20191015
  5. ROSIS [Concomitant]
     Active Substance: FUROSEMIDE
     Indication: ACUTE PULMONARY OEDEMA
     Dosage: 40 MG, TID
     Route: 065
  6. HYDROXYUREA. [Suspect]
     Active Substance: HYDROXYUREA
     Indication: MYELOFIBROSIS
     Dosage: UNK
     Route: 065
     Dates: start: 20161121, end: 20190227
  7. JAKAVI [Suspect]
     Active Substance: RUXOLITINIB
     Indication: MYELOFIBROSIS
     Dosage: 30 MILLIGRAM, UNK
     Route: 048
     Dates: start: 20170104
  8. JAKAVI [Suspect]
     Active Substance: RUXOLITINIB
     Dosage: 30 MG, UNK
     Route: 048
     Dates: start: 20181030

REACTIONS (42)
  - Aortic arteriosclerosis [Unknown]
  - Cough [Recovered/Resolved]
  - Pyrexia [Recovered/Resolved]
  - Chills [Recovered/Resolved]
  - Pyrexia [Recovering/Resolving]
  - Hyperferritinaemia [Unknown]
  - Pneumocystis jirovecii pneumonia [Unknown]
  - Decreased appetite [Unknown]
  - Productive cough [Recovered/Resolved]
  - Spinal compression fracture [Unknown]
  - Ill-defined disorder [Unknown]
  - Thrombocytopenia [Unknown]
  - Vomiting [Recovered/Resolved]
  - Blood pressure increased [Unknown]
  - Chills [Recovered/Resolved]
  - Anaemia [Unknown]
  - Epigastric discomfort [Unknown]
  - Malaise [Unknown]
  - Thyroid mass [Unknown]
  - Bacterial infection [Unknown]
  - Lung consolidation [Recovering/Resolving]
  - Dyspnoea [Recovered/Resolved]
  - Lung infiltration [Recovering/Resolving]
  - Burning sensation [Unknown]
  - Oedema peripheral [Unknown]
  - Dyspnoea exertional [Unknown]
  - Pyrexia [Recovered/Resolved]
  - Bone marrow failure [Unknown]
  - Headache [Unknown]
  - Pneumonia [Recovered/Resolved]
  - Acute kidney injury [Not Recovered/Not Resolved]
  - Choking [Unknown]
  - Dyspnoea [Recovered/Resolved]
  - Chills [Recovering/Resolving]
  - Interstitial lung disease [Recovered/Resolved]
  - Rash [Unknown]
  - Pneumonia cytomegaloviral [Recovering/Resolving]
  - Arteriosclerosis coronary artery [Unknown]
  - Eosinophilic pneumonia [Recovering/Resolving]
  - Hypersensitivity pneumonitis [Recovering/Resolving]
  - Viral infection [Unknown]
  - Diarrhoea [Unknown]

NARRATIVE: CASE EVENT DATE: 20181118
